FAERS Safety Report 21949197 (Version 1)
Quarter: 2023Q1

REPORT INFORMATION
  Report Type: Spontaneous
  Country: US (occurrence: None)
  Receive Date: 20230203
  Receipt Date: 20230203
  Transmission Date: 20230418
  Serious: Yes (Other)
  Sender: FDA-Public Use
  Company Number: 2023A025753

PATIENT
  Sex: Male

DRUGS (2)
  1. SEROQUEL [Suspect]
     Active Substance: QUETIAPINE FUMARATE
     Route: 048
  2. LEVODOPA [Suspect]
     Active Substance: LEVODOPA

REACTIONS (4)
  - General physical health deterioration [Unknown]
  - Dissociation [Unknown]
  - Sleep disorder [Unknown]
  - Drug ineffective [Unknown]
